FAERS Safety Report 4599492-7 (Version None)
Quarter: 2005Q1

REPORT INFORMATION
  Report Type: 
  Country: None (occurrence: None)
  Receive Date: 20050303
  Receipt Date: 20050216
  Transmission Date: 20050727
  Serious: Yes (Other)
  Sender: FDA-Public Use
  Company Number: SP00400

PATIENT
  Age: 50 Year
  Sex: Male

DRUGS (2)
  1. XIFAXAN [Suspect]
     Indication: HEPATIC ENCEPHALOPATHY
     Dosage: 200 MG/BID, ORAL
     Route: 048
  2. LACTULOSE [Concomitant]

REACTIONS (3)
  - CONDITION AGGRAVATED [None]
  - NEPHROPATHY TOXIC [None]
  - RENAL FAILURE CHRONIC [None]
